FAERS Safety Report 25708708 (Version 1)
Quarter: 2025Q3

REPORT INFORMATION
  Report Type: Spontaneous
  Country: GB (occurrence: GB)
  Receive Date: 20250821
  Receipt Date: 20250821
  Transmission Date: 20251021
  Serious: Yes (Hospitalization, Other)
  Sender: DR REDDYS
  Company Number: None

PATIENT
  Age: 77 Year
  Sex: Female

DRUGS (8)
  1. FEXOFENADINE [Suspect]
     Active Substance: FEXOFENADINE HYDROCHLORIDE
     Indication: Product used for unknown indication
     Route: 065
     Dates: start: 20250312
  2. Cetraben [Concomitant]
     Indication: Product used for unknown indication
  3. BETAMETHASONE DIPROPIONATE [Concomitant]
     Active Substance: BETAMETHASONE DIPROPIONATE
     Indication: Product used for unknown indication
     Dosage: 0.05% / 3% OINTMENT , APPLY THINLY ONCE A DAY TO SOLES OF FEET
     Route: 061
  4. COAL TAR [Concomitant]
     Active Substance: COAL TAR
     Indication: Product used for unknown indication
     Dosage: CUTANEOUS EMULSION APPLY ONCE A DAY TO SOLES OF FEET AS DIRECTED
     Route: 003
  5. COCODAMOL [Concomitant]
     Active Substance: ACETAMINOPHEN\CODEINE PHOSPHATE
     Indication: Product used for unknown indication
  6. ELOCON [Concomitant]
     Active Substance: MOMETASONE FUROATE
     Indication: Product used for unknown indication
  7. Evacal-D3 [Concomitant]
     Indication: Product used for unknown indication
     Dosage: 1500 MG / 400 UNIT, ONE TO BE TAKEN TWICE A DAY
  8. Spikevax JN.1 [Concomitant]
     Indication: Product used for unknown indication
     Route: 030

REACTIONS (1)
  - Tachycardia [Recovered/Resolved]
